FAERS Safety Report 5862839-5 (Version None)
Quarter: 2008Q3

REPORT INFORMATION
  Report Type: 
  Country: None (occurrence: None)
  Receive Date: 20080828
  Receipt Date: 20080820
  Transmission Date: 20090109
  Serious: Yes (Death)
  Sender: FDA-Public Use
  Company Number: A0700334A

PATIENT
  Age: 50 Year
  Sex: Male
  Weight: 100 kg

DRUGS (9)
  1. PAXIL [Suspect]
     Indication: DEPRESSION
     Dosage: 40MG PER DAY
     Route: 048
     Dates: start: 19990101, end: 20060901
  2. EFFEXOR [Suspect]
     Indication: DEPRESSION
     Route: 048
     Dates: start: 20060901
  3. COZAAR [Concomitant]
     Dosage: 50MG PER DAY
  4. DARVOCET [Concomitant]
     Dosage: 100MG AS REQUIRED
  5. NEXIUM [Concomitant]
     Dosage: 40MG PER DAY
  6. BUSPAR [Concomitant]
     Dosage: 7.5MG PER DAY
  7. CELEBREX [Concomitant]
     Dosage: 200MG PER DAY
  8. AMBIEN [Concomitant]
     Dosage: 10MG PER DAY
  9. CARAFATE [Concomitant]
     Dosage: 1G THREE TIMES PER DAY

REACTIONS (2)
  - COMPLETED SUICIDE [None]
  - DEPRESSION [None]
